FAERS Safety Report 22635194 (Version 1)
Quarter: 2023Q2

REPORT INFORMATION
  Report Type: Spontaneous
  Country: MA (occurrence: MA)
  Receive Date: 20230623
  Receipt Date: 20230623
  Transmission Date: 20230722
  Serious: Yes (Other)
  Sender: FDA-Public Use
  Company Number: MA-SUN PHARMACEUTICAL INDUSTRIES LTD-2023R1-386551

PATIENT
  Age: 60 Year
  Sex: Male

DRUGS (2)
  1. IMATINIB [Suspect]
     Active Substance: IMATINIB
     Indication: Gastrointestinal stromal tumour
     Dosage: 400 MILLIGRAM, DAILY
     Route: 065
  2. IMATINIB [Suspect]
     Active Substance: IMATINIB
     Indication: Metastases to liver

REACTIONS (5)
  - Bicytopenia [Unknown]
  - Lymphopenia [Unknown]
  - Hepatitis B reactivation [Unknown]
  - Lichen planus [Unknown]
  - Platelet count decreased [Unknown]
